FAERS Safety Report 11244857 (Version 6)
Quarter: 2015Q3

REPORT INFORMATION
  Report Type: Spontaneous
  Country: GB (occurrence: GB)
  Receive Date: 20150707
  Receipt Date: 20150818
  Transmission Date: 20151125
  Serious: Yes (Other)
  Sender: FDA-Public Use
  Company Number: GB-WATSON-2015-13479

PATIENT
  Age: 71 Year
  Sex: Female
  Weight: 71.66 kg

DRUGS (9)
  1. OMEPRAZOLE (UNKNOWN) [Suspect]
     Active Substance: OMEPRAZOLE
     Dosage: 30 MG, DAILY  (TABLET)
     Route: 048
     Dates: start: 2013, end: 20150515
  2. RENNIE                             /06879101/ [Concomitant]
     Active Substance: CALCIUM CARBONATE\MAGNESIUM CARBONATE
     Indication: PRODUCT USED FOR UNKNOWN INDICATION
     Dosage: UNK
     Route: 065
  3. RANITIDINE (UNKNOWN) [Suspect]
     Active Substance: RANITIDINE HYDROCHLORIDE
     Indication: GASTROOESOPHAGEAL REFLUX DISEASE
     Dosage: 150 MG, TOTAL (TABLET)
     Route: 048
     Dates: start: 20150507, end: 20150508
  4. ANADIN                             /00141001/ [Concomitant]
     Indication: PRODUCT USED FOR UNKNOWN INDICATION
     Dosage: UNK. AT THE MOST 2 TABLETS IN 6 MONTHS
     Route: 065
  5. OMEPRAZOLE (UNKNOWN) [Suspect]
     Active Substance: OMEPRAZOLE
     Dosage: UNK  (TABLET)
     Route: 048
     Dates: start: 20111221, end: 2013
  6. OMEPRAZOLE (UNKNOWN) [Suspect]
     Active Substance: OMEPRAZOLE
     Indication: GASTROOESOPHAGEAL REFLUX DISEASE
     Dosage: UNK UNK, Q24H (10 TO 20 MG- TABLET)
     Route: 048
     Dates: end: 20150515
  7. ADCAL D3 [Concomitant]
     Active Substance: CALCIUM CARBONATE\CHOLECALCIFEROL
     Indication: PRODUCT USED FOR UNKNOWN INDICATION
     Dosage: 1 DF, DAILY
     Route: 065
     Dates: start: 1986
  8. ALENDRONIC ACID [Concomitant]
     Active Substance: ALENDRONIC ACID
     Indication: PRODUCT USED FOR UNKNOWN INDICATION
     Dosage: 70 MG, 1/WEEK
     Route: 065
     Dates: start: 2014
  9. GAVISCON                           /00237601/ [Concomitant]
     Active Substance: ALUMINUM HYDROXIDE\MAGNESIUM CARBONATE
     Indication: PRODUCT USED FOR UNKNOWN INDICATION
     Dosage: UNK
     Route: 065

REACTIONS (1)
  - Heart rate irregular [Recovering/Resolving]
